FAERS Safety Report 8590634-5 (Version None)
Quarter: 2012Q3

REPORT INFORMATION
  Report Type: 
  Country: None (occurrence: None)
  Receive Date: 20120813
  Receipt Date: 20120810
  Transmission Date: 20120928
  Serious: No
  Sender: FDA-Public Use
  Company Number: US-PFIZER INC-2012189457

PATIENT
  Age: 62 Year
  Sex: Male
  Weight: 100 kg

DRUGS (2)
  1. SUTENT [Suspect]
     Indication: RENAL CANCER STAGE IV
     Dosage: 50 MG, 1X/DAY, 4 WEEKS ON/2 WEEKS OFF
     Route: 048
     Dates: start: 20110101, end: 20120801
  2. LOMOTIL [Concomitant]
     Indication: DIARRHOEA
     Dosage: 2.5 MG, AS NEEDED
     Dates: start: 20120201

REACTIONS (1)
  - SWELLING FACE [None]
